FAERS Safety Report 15335058 (Version 2)
Quarter: 2022Q1

REPORT INFORMATION
  Report Type: Spontaneous
  Country: BR (occurrence: BR)
  Receive Date: 20180830
  Receipt Date: 20220130
  Transmission Date: 20220424
  Serious: Yes (Life-Threatening, Hospitalization, Other)
  Sender: FDA-Public Use
  Company Number: BR-JAZZ-2018-BR-012952

PATIENT
  Age: 43 Year
  Sex: Male
  Weight: 92 kg

DRUGS (9)
  1. ASPARAGINASE [Suspect]
     Active Substance: ASPARAGINASE
     Indication: Acute lymphocytic leukaemia
     Dosage: 200 DF,
  2. ASPARAGINASE [Suspect]
     Active Substance: ASPARAGINASE
     Dosage: UNK
  3. FILGRASTIM [Suspect]
     Active Substance: FILGRASTIM
     Indication: Acute lymphocytic leukaemia
     Dosage: 300 ?G, QD
  4. PREDNISONE [Suspect]
     Active Substance: PREDNISONE
     Indication: Acute lymphocytic leukaemia
     Dosage: 100 MG
     Dates: start: 20170728
  5. DAUNORUBICIN [Suspect]
     Active Substance: DAUNORUBICIN
     Indication: Acute lymphocytic leukaemia
     Dosage: 107 MG
     Dates: start: 20170728, end: 20170730
  6. CYCLOPHOSPHAMIDE [Suspect]
     Active Substance: CYCLOPHOSPHAMIDE
     Indication: Acute lymphocytic leukaemia
     Dosage: 1608 MG
     Dates: start: 20170728
  7. VINCRISTINE [Suspect]
     Active Substance: VINCRISTINE
     Indication: Acute lymphocytic leukaemia
     Dosage: 2 MG
     Dates: start: 20170728
  8. DEXAMETHASONE [Concomitant]
     Active Substance: DEXAMETHASONE
     Indication: Product used for unknown indication
     Dosage: UNK
  9. CYTARABINE [Concomitant]
     Active Substance: CYTARABINE
     Indication: Product used for unknown indication
     Dosage: UNK

REACTIONS (11)
  - Acute lymphocytic leukaemia recurrent [Unknown]
  - Sinusitis fungal [Recovered/Resolved]
  - Mucosal inflammation [Recovered/Resolved]
  - Klebsiella infection [Recovered/Resolved]
  - Staphylococcal bacteraemia [Recovered/Resolved]
  - Cholecystitis [Unknown]
  - Neutropenic colitis [Recovered/Resolved]
  - Septic shock [Unknown]
  - Febrile neutropenia [Unknown]
  - Candida sepsis [Recovered/Resolved]
  - Sepsis [Recovered/Resolved]

NARRATIVE: CASE EVENT DATE: 20180207
